FAERS Safety Report 8797789 (Version 1)
Quarter: 2012Q4

REPORT INFORMATION
  Report Type: 
  Country: US (occurrence: US)
  Receive Date: 20120920
  Receipt Date: 20120920
  Transmission Date: 20130627
  Serious: Yes (Other)
  Sender: FDA-Public Use
  Company Number: US-PFIZER INC-2012228433

PATIENT
  Age: 56 Year
  Sex: Male
  Weight: 90.7 kg

DRUGS (4)
  1. VIAGRA [Suspect]
     Indication: ERECTILE DYSFUNCTION
     Dosage: 50 mg, as needed
     Route: 048
  2. LISINOPRIL W/HYDROCHLOROTHIAZIDE [Concomitant]
     Indication: HYPERTENSION
     Dosage: 20/25mg, daily
  3. MINERALS NOS [Concomitant]
     Indication: MEDICAL DIET
     Dosage: UNK
  4. FISH OIL [Concomitant]
     Indication: MEDICAL DIET
     Dosage: UNK

REACTIONS (4)
  - Diabetes mellitus [Unknown]
  - Heart rate increased [Recovered/Resolved]
  - Flushing [Recovered/Resolved]
  - Rhinorrhoea [Recovered/Resolved]
